FAERS Safety Report 7668585-X (Version None)
Quarter: 2011Q3

REPORT INFORMATION
  Report Type: 
  Country: None (occurrence: None)
  Receive Date: 20110808
  Receipt Date: 20110808
  Transmission Date: 20111222
  Serious: No
  Sender: FDA-Public Use
  Company Number: None

PATIENT
  Sex: Female
  Weight: 99.79 kg

DRUGS (2)
  1. REMICADE [Suspect]
     Indication: CROHN'S DISEASE
     Dosage: UNK
     Route: 042
  2. HUMIRA [Concomitant]
     Indication: CROHN'S DISEASE
     Dosage: 40 MG PEN
     Route: 058

REACTIONS (5)
  - SYSTEMIC LUPUS ERYTHEMATOSUS [None]
  - ANAEMIA [None]
  - MOBILITY DECREASED [None]
  - TYPE IV HYPERSENSITIVITY REACTION [None]
  - SOMNOLENCE [None]
